FAERS Safety Report 24379142 (Version 2)
Quarter: 2024Q4

REPORT INFORMATION
  Report Type: Spontaneous
  Country: GR (occurrence: GR)
  Receive Date: 20240930
  Receipt Date: 20241004
  Transmission Date: 20250114
  Serious: Yes (Other)
  Sender: MYLAN
  Company Number: GR-PFIZER INC-PV202400118007

PATIENT
  Age: 69 Year
  Sex: Male

DRUGS (3)
  1. OXALIPLATIN [Suspect]
     Active Substance: OXALIPLATIN
     Indication: Colon cancer metastatic
     Dosage: 45 MILLIGRAM/SQ. METER, CYCLE,(THIRD CYCLE OF CHEMOTHERAPY)
     Route: 065
  2. FLUOROURACIL [Suspect]
     Active Substance: FLUOROURACIL
     Indication: Colon cancer metastatic
     Dosage: 450 MILLIGRAM/SQ. METER, CYCLE,(THIRD CYCLE OF CHEMOTHERAPY)
     Route: 065
  3. LEUCOVORIN CALCIUM [Suspect]
     Active Substance: LEUCOVORIN CALCIUM
     Indication: Colon cancer metastatic
     Dosage: 200 MILLIGRAM/SQ. METER, CYCLE,(THIRD CYCLE OF CHEMOTHERAPY)
     Route: 065

REACTIONS (1)
  - Acute motor axonal neuropathy [Recovering/Resolving]
